FAERS Safety Report 5800527-1 (Version None)
Quarter: 2008Q3

REPORT INFORMATION
  Report Type: 
  Country: None (occurrence: None)
  Receive Date: 20080702
  Receipt Date: 20080702
  Transmission Date: 20090109
  Serious: Yes (Other)
  Sender: FDA-Public Use
  Company Number: None

PATIENT
  Sex: Female

DRUGS (9)
  1. REVLIMID [Suspect]
     Indication: MULTIPLE MYELOMA
     Dosage: 25MG DAILY 21D/28D PO
     Route: 048
  2. CLONAZEPAM [Concomitant]
  3. GABAPENTIN [Concomitant]
  4. PREDNISONE TAB [Concomitant]
  5. FLUDROCORTISONE ACETATE [Concomitant]
  6. SEROQUEL [Concomitant]
  7. PHENAZOPYRIDINE HCL TAB [Concomitant]
  8. CELLCEPT [Concomitant]
  9. MORPHINE [Concomitant]

REACTIONS (2)
  - CHILLS [None]
  - NEUTROPENIA [None]
